FAERS Safety Report 11702280 (Version 2)
Quarter: 2015Q4

REPORT INFORMATION
  Report Type: Spontaneous
  Country: US (occurrence: US)
  Receive Date: 20151105
  Receipt Date: 20151110
  Transmission Date: 20160304
  Serious: Yes (Death, Hospitalization, Other)
  Sender: FDA-Public Use
  Company Number: US-TEVA-606749USA

PATIENT
  Age: 38 Year
  Sex: Female
  Weight: 108.96 kg

DRUGS (2)
  1. WARFARIN [Suspect]
     Active Substance: WARFARIN
     Dosage: 5 MILLIGRAM DAILY; TOTAL OF 6 MG A DAY STARTING 22-JUL-2015
     Dates: start: 20040708, end: 20041001
  2. WARFARIN [Suspect]
     Active Substance: WARFARIN
     Indication: THROMBOSIS
     Dosage: 1 MILLIGRAM DAILY; TOTAL OF 6 MG A DAY STARTING 22-JUL-2015
     Dates: start: 20040722, end: 20041001

REACTIONS (6)
  - Death [Fatal]
  - Intracranial pressure increased [Unknown]
  - Eye disorder [Unknown]
  - Loss of consciousness [Unknown]
  - Cerebrovascular accident [Unknown]
  - Intracranial aneurysm [Unknown]

NARRATIVE: CASE EVENT DATE: 200408
